FAERS Safety Report 6036593-0 (Version None)
Quarter: 2009Q1

REPORT INFORMATION
  Report Type: 
  Country: None (occurrence: None)
  Receive Date: 20090114
  Receipt Date: 20090107
  Transmission Date: 20090719
  Serious: Yes (Hospitalization, Other)
  Sender: FDA-Public Use
  Company Number: US-AMGEN-QUU327312

PATIENT
  Sex: Female

DRUGS (1)
  1. ENBREL [Suspect]
     Indication: RHEUMATOID ARTHRITIS
     Route: 058
     Dates: start: 20060524

REACTIONS (14)
  - COUGH [None]
  - DYSPNOEA [None]
  - HEADACHE [None]
  - INJECTION SITE IRRITATION [None]
  - INJECTION SITE URTICARIA [None]
  - OROPHARYNGEAL PAIN [None]
  - POSTNASAL DRIP [None]
  - PULMONARY FIBROSIS [None]
  - RASH [None]
  - RASH PRURITIC [None]
  - RHEUMATOID ARTHRITIS [None]
  - SCAB [None]
  - STILL'S DISEASE ADULT ONSET [None]
  - STRESS [None]
